FAERS Safety Report 24357477 (Version 1)
Quarter: 2024Q3

REPORT INFORMATION
  Report Type: Spontaneous
  Country: US (occurrence: None)
  Receive Date: 20240923
  Receipt Date: 20240923
  Transmission Date: 20241016
  Serious: Yes (Other)
  Sender: Public
  Company Number: None

PATIENT
  Age: 54 Year
  Sex: Female
  Weight: 49.5 kg

DRUGS (2)
  1. PREGABALIN [Suspect]
     Active Substance: PREGABALIN
     Indication: Restless legs syndrome
     Dosage: 150 MG MILLIGRAMS AT  BEDTIME
     Route: 048
     Dates: start: 20240606
  2. PREGABALIN [Suspect]
     Active Substance: PREGABALIN
     Indication: Restless legs syndrome
     Dosage: 150 MG QPM  RLS
     Route: 048

REACTIONS (3)
  - Constipation [None]
  - Brain fog [None]
  - Insomnia [None]

NARRATIVE: CASE EVENT DATE: 20240902
